FAERS Safety Report 24030126 (Version 1)
Quarter: 2024Q2

REPORT INFORMATION
  Report Type: Report from Study
  Country: AU (occurrence: AU)
  Receive Date: 20240628
  Receipt Date: 20240628
  Transmission Date: 20240716
  Serious: Yes (Hospitalization, Other)
  Sender: FDA-Public Use
  Company Number: AU-ABBVIE-5817455

PATIENT
  Sex: Male

DRUGS (2)
  1. HUMIRA [Suspect]
     Active Substance: ADALIMUMAB
     Indication: Rheumatoid arthritis
     Route: 058
     Dates: end: 202405
  2. HUMIRA [Suspect]
     Active Substance: ADALIMUMAB
     Dosage: RESTARTED HUMIRA
     Route: 058
     Dates: start: 20240603

REACTIONS (1)
  - Fistula [Recovering/Resolving]
